FAERS Safety Report 9324622 (Version 1)
Quarter: 2013Q2

REPORT INFORMATION
  Report Type: Spontaneous
  Country: US (occurrence: US)
  Receive Date: 20130603
  Receipt Date: 20130603
  Transmission Date: 20140414
  Serious: Yes (Other)
  Sender: FDA-Public Use
  Company Number: US-GLAXOSMITHKLINE-A0790602A

PATIENT
  Age: 52 Year
  Sex: Male
  Weight: 113.6 kg

DRUGS (2)
  1. AVANDAMET [Suspect]
     Indication: TYPE 2 DIABETES MELLITUS
     Route: 048
  2. AVANDIA [Suspect]
     Indication: TYPE 2 DIABETES MELLITUS
     Route: 048
     Dates: start: 200307

REACTIONS (3)
  - Blindness [Not Recovered/Not Resolved]
  - Visual impairment [Unknown]
  - Cystoid macular oedema [Unknown]
